FAERS Safety Report 9425075 (Version 1)
Quarter: 2013Q3

REPORT INFORMATION
  Report Type: Spontaneous
  Country: FR (occurrence: FR)
  Receive Date: 20130729
  Receipt Date: 20130729
  Transmission Date: 20140515
  Serious: Yes (Hospitalization, Other)
  Sender: FDA-Public Use
  Company Number: FR-TEVA-420523ISR

PATIENT
  Age: 80 Year
  Sex: Male

DRUGS (15)
  1. SKENAN [Concomitant]
     Route: 065
  2. SYMBICORT TURBUHALER [Concomitant]
     Route: 055
  3. BRICANYL [Concomitant]
  4. LOVENOX [Concomitant]
     Route: 065
  5. EFFENTORA 100 MG [Suspect]
     Route: 002
     Dates: start: 2013
  6. SKENAN LP 100 MG [Suspect]
     Route: 048
     Dates: start: 2013, end: 20130425
  7. XATRAL LP 10 MG [Concomitant]
     Route: 048
  8. FUROSEMIDE [Concomitant]
     Route: 065
  9. DAONIL 5 MG [Concomitant]
     Route: 048
  10. TRIVASTAL 20 MG [Concomitant]
     Route: 048
  11. TRANSIPEG 5.9 G [Concomitant]
     Route: 048
  12. PLAVIX 75 MG [Concomitant]
     Route: 048
  13. DOLIPRANE 1000 MG [Concomitant]
     Route: 048
  14. VITAMIN B12 [Concomitant]
     Route: 065
  15. INEXIUM [Concomitant]
     Route: 065

REACTIONS (4)
  - Coma [Recovered/Resolved]
  - Hypoglycaemia [Recovered/Resolved]
  - Dyspnoea [Recovered/Resolved]
  - Urinary retention [Unknown]
